FAERS Safety Report 6160965-7 (Version None)
Quarter: 2009Q2

REPORT INFORMATION
  Report Type: 
  Country: None (occurrence: None)
  Receive Date: 20090420
  Receipt Date: 20090411
  Transmission Date: 20091009
  Serious: Yes (Hospitalization, Other)
  Sender: FDA-Public Use
  Company Number: US-AMGEN-COG342616

PATIENT
  Sex: Female

DRUGS (2)
  1. ENBREL [Suspect]
     Indication: RHEUMATOID ARTHRITIS
     Route: 058
     Dates: start: 19990101
  2. METHOTREXATE [Concomitant]
     Route: 048

REACTIONS (7)
  - BLINDNESS [None]
  - FUNGAL INFECTION [None]
  - HEADACHE [None]
  - INTRACRANIAL ANEURYSM [None]
  - MULTIPLE ALLERGIES [None]
  - OROPHARYNGEAL PAIN [None]
  - SINUSITIS [None]
